FAERS Safety Report 8010995-5 (Version None)
Quarter: 2011Q4

REPORT INFORMATION
  Report Type: 
  Country: None (occurrence: None)
  Receive Date: 20111228
  Receipt Date: 20111221
  Transmission Date: 20120403
  Serious: Yes (Hospitalization)
  Sender: FDA-Public Use
  Company Number: FR-PFIZER INC-2011309461

PATIENT
  Age: 29 Year
  Sex: Female

DRUGS (1)
  1. SULFASALAZINE [Suspect]
     Indication: ANKYLOSING SPONDYLITIS
     Dosage: UNK
     Dates: start: 20051001

REACTIONS (10)
  - LIVER TRANSPLANT [None]
  - DRUG RASH WITH EOSINOPHILIA AND SYSTEMIC SYMPTOMS [None]
  - PYREXIA [None]
  - RASH [None]
  - PHARYNGITIS [None]
  - HEPATOSPLENOMEGALY [None]
  - EOSINOPHILIA [None]
  - HEPATITIS FULMINANT [None]
  - ANGIOEDEMA [None]
  - LYMPHADENOPATHY [None]
